FAERS Safety Report 5257164-X (Version None)
Quarter: 2007Q1

REPORT INFORMATION
  Report Type: 
  Country: None (occurrence: None)
  Receive Date: 20070305
  Receipt Date: 20070215
  Transmission Date: 20070707
  Serious: Yes (Life-Threatening)
  Sender: FDA-Public Use
  Company Number: 2007EN000016

PATIENT
  Age: 76 Year
  Sex: Male

DRUGS (3)
  1. ABELCET [Suspect]
     Indication: BRONCHOPULMONARY ASPERGILLOSIS
     Dosage: 300 MG; QD; IV
     Route: 042
     Dates: start: 20061224, end: 20061231
  2. LEVOFLOXACIN [Concomitant]
  3. MEROPENEM [Concomitant]

REACTIONS (2)
  - ANAEMIA [None]
  - CONDITION AGGRAVATED [None]
